FAERS Safety Report 23091480 (Version 2)
Quarter: 2024Q4

REPORT INFORMATION
  Report Type: Spontaneous
  Country: US (occurrence: US)
  Receive Date: 20231020
  Receipt Date: 20241028
  Transmission Date: 20250114
  Serious: No
  Sender: NOVO NORDISK
  Company Number: US-NOVOPROD-1098347

PATIENT
  Sex: Female

DRUGS (1)
  1. ESTRADIOL [Suspect]
     Active Substance: ESTRADIOL
     Indication: Product used for unknown indication
     Dosage: TWICE A DAY FOR 6 DAYS
     Route: 067
     Dates: start: 20230711

REACTIONS (8)
  - Polyp [Unknown]
  - Uterine leiomyoma [Unknown]
  - Vaginal haemorrhage [Unknown]
  - Fungal infection [Unknown]
  - Breast tenderness [Unknown]
  - Nausea [Unknown]
  - Diarrhoea [Unknown]
  - Product prescribing error [Unknown]

NARRATIVE: CASE EVENT DATE: 20230712
